FAERS Safety Report 14682517 (Version 3)
Quarter: 2024Q2

REPORT INFORMATION
  Report Type: Report from Study
  Country: US (occurrence: US)
  Receive Date: 20180327
  Receipt Date: 20240514
  Transmission Date: 20240716
  Serious: Yes (Other)
  Sender: FDA-Public Use
  Company Number: US-AUROBINDO-AUR-APL-2018-016619

PATIENT
  Age: 38 Year
  Sex: Female

DRUGS (6)
  1. AZITHROMYCIN [Interacting]
     Active Substance: AZITHROMYCIN
     Indication: Product used for unknown indication
     Dosage: UNK
     Route: 065
  2. ONDANSETRON [Interacting]
     Active Substance: ONDANSETRON
     Indication: Product used for unknown indication
     Dosage: 4 MILLIGRAM (SINGLE DOSE ; IN TOTAL)
     Route: 042
  3. SULFAMETHOXAZOLE\TRIMETHOPRIM [Suspect]
     Active Substance: SULFAMETHOXAZOLE\TRIMETHOPRIM
     Indication: Product used for unknown indication
     Dosage: ()
     Route: 065
  4. PROCHLORPERAZINE [Interacting]
     Active Substance: PROCHLORPERAZINE
     Indication: Product used for unknown indication
     Dosage: ()
     Route: 065
  5. TACROLIMUS [Interacting]
     Active Substance: TACROLIMUS
     Indication: Product used for unknown indication
     Dosage: ()
     Route: 065
  6. LEVALBUTEROL [Suspect]
     Active Substance: LEVALBUTEROL
     Indication: Product used for unknown indication
     Dosage: ()
     Route: 065

REACTIONS (2)
  - Electrocardiogram QT prolonged [Unknown]
  - Drug interaction [Unknown]
